FAERS Safety Report 5375652-2 (Version None)
Quarter: 2007Q2

REPORT INFORMATION
  Report Type: 
  Country: None (occurrence: None)
  Receive Date: 20070629
  Receipt Date: 20070620
  Transmission Date: 20071010
  Serious: Yes (Life-Threatening, Hospitalization, Other)
  Sender: FDA-Public Use
  Company Number: US-PFIZER INC-2007051869

PATIENT
  Sex: Male
  Weight: 81.6 kg

DRUGS (3)
  1. LIPITOR [Suspect]
     Indication: BLOOD CHOLESTEROL INCREASED
  2. LISINOPRIL [Concomitant]
  3. LOPRESSOR [Concomitant]

REACTIONS (7)
  - ABASIA [None]
  - ARTHROPATHY [None]
  - CORONARY ARTERY OCCLUSION [None]
  - DYSSTASIA [None]
  - EXERCISE TOLERANCE DECREASED [None]
  - GALLBLADDER DISORDER [None]
  - MUSCLE RIGIDITY [None]
